FAERS Safety Report 5710295-X (Version None)
Quarter: 2008Q2

REPORT INFORMATION
  Report Type: 
  Country: None (occurrence: None)
  Receive Date: 20080418
  Receipt Date: 20080410
  Transmission Date: 20081010
  Serious: Yes (Death)
  Sender: FDA-Public Use
  Company Number: US-PFIZER INC-2008025340

PATIENT
  Sex: Male

DRUGS (6)
  1. LIPITOR [Suspect]
     Route: 048
  2. LISINOPRIL [Suspect]
     Indication: BLOOD PRESSURE
     Route: 048
  3. LISINOPRIL [Suspect]
     Indication: CARDIAC DISORDER
  4. PLAVIX [Concomitant]
  5. IMDUR [Concomitant]
  6. ALL OTHER THERAPEUTIC PRODUCTS [Concomitant]

REACTIONS (1)
  - DEATH [None]
